FAERS Safety Report 9499441 (Version 1)
Quarter: 2013Q1

REPORT INFORMATION
  Report Type: Spontaneous
  Country: US (occurrence: None)
  Receive Date: 20130107
  Receipt Date: 20130107
  Transmission Date: 20140127
  Serious: No
  Sender: FDA-Public Use
  Company Number: PHEH2012US017674

PATIENT
  Age: 42 Year
  Sex: Male
  Weight: 96.1 kg

DRUGS (2)
  1. GILENYA (FTY) CAPSULE, 0.5MG [Suspect]
     Indication: RELAPSING-REMITTING MULTIPLE SCLEROSIS
     Route: 048
  2. NUVIGIL (ARMODAFINIL), 250MG [Concomitant]

REACTIONS (2)
  - Central nervous system lesion [None]
  - Fatigue [None]
